FAERS Safety Report 19723935 (Version 3)
Quarter: 2022Q1

REPORT INFORMATION
  Report Type: Other
  Country: US (occurrence: None)
  Receive Date: 20210819
  Receipt Date: 20220314
  Transmission Date: 20220423
  Serious: Yes (Hospitalization, Other)
  Sender: FDA-Public Use
  Company Number: US-ROCHE-2890315

PATIENT
  Sex: Female
  Weight: 95 kg

DRUGS (5)
  1. OCREVUS [Suspect]
     Active Substance: OCRELIZUMAB
     Indication: Multiple sclerosis
     Route: 042
     Dates: start: 2017
  2. ACTEMRA [Suspect]
     Active Substance: TOCILIZUMAB
     Indication: COVID-19 pneumonia
     Dosage: ONE TIME DOSE
     Route: 042
     Dates: start: 20210727, end: 20210727
  3. SYNTHROID [Concomitant]
     Active Substance: LEVOTHYROXINE SODIUM
     Indication: Hypothyroidism
  4. PFIZER-BIONTECH COVID-19 VACCINE [Concomitant]
     Active Substance: TOZINAMERAN
     Dates: start: 202103, end: 202104
  5. XARELTO [Concomitant]
     Active Substance: RIVAROXABAN

REACTIONS (7)
  - COVID-19 pneumonia [Recovered/Resolved]
  - Off label use [Unknown]
  - Laboratory test abnormal [Unknown]
  - Hypoaesthesia [Unknown]
  - Vitamin D deficiency [Unknown]
  - Depression [Unknown]
  - Intracardiac thrombus [Unknown]
